FAERS Safety Report 25031765 (Version 1)
Quarter: 2025Q1

REPORT INFORMATION
  Report Type: Spontaneous
  Country: US (occurrence: None)
  Receive Date: 20250301
  Receipt Date: 20250301
  Transmission Date: 20250409
  Serious: Yes (Other)
  Sender: FDA-CTU
  Company Number: None

PATIENT

DRUGS (1)
  1. HYDROXYZINE PAMOATE [Suspect]
     Active Substance: HYDROXYZINE PAMOATE

REACTIONS (2)
  - Urticaria [None]
  - Urticaria [None]

NARRATIVE: CASE EVENT DATE: 20250301
